FAERS Safety Report 15589885 (Version 1)
Quarter: 2018Q4

REPORT INFORMATION
  Report Type: Spontaneous
  Country: US (occurrence: US)
  Receive Date: 20181106
  Receipt Date: 20181106
  Transmission Date: 20190205
  Serious: No
  Sender: FDA-Public Use
  Company Number: US-BAUSCH-BL-2018-029172

PATIENT
  Age: 75 Year
  Sex: Female
  Weight: 80.81 kg

DRUGS (1)
  1. PROLENSA [Suspect]
     Active Substance: BROMFENAC SODIUM
     Indication: PRODUCT USED FOR UNKNOWN INDICATION
     Dosage: SINGLE (INTO HER RIGHT EYE)
     Route: 047
     Dates: start: 20181013, end: 20181013

REACTIONS (7)
  - Feeling hot [Recovering/Resolving]
  - Skin burning sensation [Recovering/Resolving]
  - Agitation [Recovering/Resolving]
  - Pruritus generalised [Recovering/Resolving]
  - Blood pressure increased [Recovering/Resolving]
  - Insomnia [Recovering/Resolving]
  - Feeling abnormal [Recovering/Resolving]

NARRATIVE: CASE EVENT DATE: 20181013
